FAERS Safety Report 25762965 (Version 4)
Quarter: 2025Q4

REPORT INFORMATION
  Report Type: Spontaneous
  Country: JP (occurrence: JP)
  Receive Date: 20250904
  Receipt Date: 20251201
  Transmission Date: 20260118
  Serious: Yes (Other)
  Sender: JOHNSON AND JOHNSON
  Company Number: JP-JNJFOC-20250729215

PATIENT
  Age: 51 Year
  Sex: Female

DRUGS (5)
  1. LAZCLUZE [Suspect]
     Active Substance: LAZERTINIB
     Indication: EGFR gene mutation
     Route: 048
     Dates: start: 20250716, end: 2025
  2. LAZCLUZE [Suspect]
     Active Substance: LAZERTINIB
     Route: 048
     Dates: start: 2025, end: 2025
  3. LAZCLUZE [Suspect]
     Active Substance: LAZERTINIB
     Route: 048
     Dates: start: 2025
  4. RYBREVANT [Suspect]
     Active Substance: AMIVANTAMAB-VMJW
     Indication: EGFR gene mutation
     Route: 041
     Dates: start: 20250716, end: 20250716
  5. RYBREVANT [Suspect]
     Active Substance: AMIVANTAMAB-VMJW
     Dosage: DOSE UNKNOWN
     Route: 041
     Dates: start: 202507, end: 2025

REACTIONS (4)
  - Skin disorder [Recovered/Resolved]
  - Infusion related reaction [Recovered/Resolved]
  - Chest discomfort [Recovered/Resolved]
  - Chest pain [Unknown]

NARRATIVE: CASE EVENT DATE: 20250101
